FAERS Safety Report 9514872 (Version 1)
Quarter: 2013Q1

REPORT INFORMATION
  Report Type: Spontaneous
  Country: US (occurrence: None)
  Receive Date: 20130305
  Receipt Date: 20130305
  Transmission Date: 20140127
  Serious: Yes (Hospitalization)
  Sender: FDA-Public Use
  Company Number: 163-21880-12121815

PATIENT
  Age: 64 Year
  Sex: Male

DRUGS (9)
  1. REVLIMID [Suspect]
     Indication: PLASMA CELL MYELOMA
     Dosage: 10 MG,  1 IN 1 D,  PO?12/22/2010 - TEMPORARILY INTERRUPTED
     Route: 048
     Dates: start: 20101222
  2. ZYRTEC (CETIRIZINE HYDROCHLORIDE) (UNKNOWN) [Concomitant]
  3. VITAMIN E (TOCOPHEROL) (UNKNOWN) [Concomitant]
  4. PANTOPRAZOLE SODIUM (PANTOPRAZOLE SODIUM) (UNKNOWN) [Concomitant]
  5. OXYCODONE-ACETAMINOPHEN (OXYCOCET) (UNKNOWN) [Concomitant]
  6. NADOLOL (NADOLOL) (UNKNOWN) [Concomitant]
  7. MULTIVITAMIN (MULTIVITAMINES) (UNKNOWN) [Concomitant]
  8. FISH OIL (FISH OIL) (UNKNOWN) [Concomitant]
  9. FENTANYL (FENTANYL) (UNKNOWN) (FENTANYL) [Concomitant]

REACTIONS (2)
  - Hip fracture [None]
  - Dizziness [None]
